FAERS Safety Report 6413971-9 (Version None)
Quarter: 2009Q4

REPORT INFORMATION
  Report Type: 
  Country: None (occurrence: None)
  Receive Date: 20091026
  Receipt Date: 20091013
  Transmission Date: 20100525
  Serious: Yes (Hospitalization)
  Sender: FDA-Public Use
  Company Number: US-JNJFOC-20091004707

PATIENT
  Age: 52 Year
  Sex: Male
  Weight: 97.52 kg

DRUGS (1)
  1. TAPENTADOL HYDROCHLORIDE [Suspect]
     Indication: MUSCULOSKELETAL PAIN
     Route: 048

REACTIONS (4)
  - CONFUSIONAL STATE [None]
  - CRYING [None]
  - DISTURBANCE IN ATTENTION [None]
  - HYPERTENSION [None]
